APPROVED DRUG PRODUCT: ACETAZOLAMIDE
Active Ingredient: ACETAZOLAMIDE
Strength: 125MG
Dosage Form/Route: TABLET;ORAL
Application: A211372 | Product #001 | TE Code: AB
Applicant: SOMERSET THERAPEUTICS LLC
Approved: Feb 22, 2021 | RLD: No | RS: No | Type: RX